FAERS Safety Report 14398289 (Version 1)
Quarter: 2018Q1

REPORT INFORMATION
  Report Type: Report from Study
  Country: CA (occurrence: CA)
  Receive Date: 20180116
  Receipt Date: 20180116
  Transmission Date: 20180509
  Serious: Yes (Hospitalization)
  Sender: FDA-Public Use
  Company Number: CA-HLSUS-2018-CA-000090

PATIENT
  Age: 78 Year
  Sex: Female

DRUGS (8)
  1. LIPITOR [Concomitant]
     Active Substance: ATORVASTATIN CALCIUM
     Route: 048
  2. ISOPHANE INSULIN [Concomitant]
     Active Substance: INSULIN NOS
  3. ISOPTO TEARS [Concomitant]
     Active Substance: HYPROMELLOSE 2910 (4000 MPA.S)
     Route: 047
  4. LACTULOSE. [Concomitant]
     Active Substance: LACTULOSE
     Route: 048
  5. VITAMIN D [Concomitant]
     Active Substance: CHOLECALCIFEROL
     Route: 048
  6. CLOZAPINE. [Suspect]
     Active Substance: CLOZAPINE
     Dosage: 300MG DAILY
     Route: 048
  7. ALTACE [Concomitant]
     Active Substance: RAMIPRIL
     Route: 048
  8. TYLENOL [Concomitant]
     Active Substance: ACETAMINOPHEN
     Route: 048

REACTIONS (37)
  - Constipation [Not Recovered/Not Resolved]
  - Acquired diaphragmatic eventration [Not Recovered/Not Resolved]
  - Kidney fibrosis [Not Recovered/Not Resolved]
  - Myocardial ischaemia [Not Recovered/Not Resolved]
  - Renal cyst [Not Recovered/Not Resolved]
  - Haematemesis [Not Recovered/Not Resolved]
  - Hyperadrenalism [Not Recovered/Not Resolved]
  - Red blood cell count decreased [Not Recovered/Not Resolved]
  - Sinus tachycardia [Not Recovered/Not Resolved]
  - Anion gap increased [Not Recovered/Not Resolved]
  - Blood albumin decreased [Not Recovered/Not Resolved]
  - Bundle branch block left [Not Recovered/Not Resolved]
  - Ileus [Not Recovered/Not Resolved]
  - Mean cell haemoglobin concentration decreased [Not Recovered/Not Resolved]
  - Red cell distribution width increased [Not Recovered/Not Resolved]
  - Amylase decreased [Not Recovered/Not Resolved]
  - Aortic valve calcification [Not Recovered/Not Resolved]
  - Internal hernia [Not Recovered/Not Resolved]
  - Lymphocyte count decreased [Not Recovered/Not Resolved]
  - Blood glucose increased [Not Recovered/Not Resolved]
  - Breast mass [Not Recovered/Not Resolved]
  - Compression fracture [Not Recovered/Not Resolved]
  - Haemoglobin decreased [Not Recovered/Not Resolved]
  - Heart rate increased [Not Recovered/Not Resolved]
  - Hunger [Not Recovered/Not Resolved]
  - Intervertebral disc degeneration [Not Recovered/Not Resolved]
  - Myocardial infarction [Not Recovered/Not Resolved]
  - White blood cell count increased [Not Recovered/Not Resolved]
  - Aortic arteriosclerosis [Not Recovered/Not Resolved]
  - Arteriosclerosis coronary artery [Not Recovered/Not Resolved]
  - Chest pain [Not Recovered/Not Resolved]
  - Gastrointestinal haemorrhage [Not Recovered/Not Resolved]
  - Gastrointestinal wall thickening [Not Recovered/Not Resolved]
  - Agitation [Not Recovered/Not Resolved]
  - Neutrophil count increased [Not Recovered/Not Resolved]
  - Pleural effusion [Not Recovered/Not Resolved]
  - Small intestinal obstruction [Not Recovered/Not Resolved]
